FAERS Safety Report 6315680-3 (Version None)
Quarter: 2009Q3

REPORT INFORMATION
  Report Type: 
  Country: None (occurrence: None)
  Receive Date: 20090818
  Receipt Date: 20090805
  Transmission Date: 20100115
  Serious: Yes (Hospitalization)
  Sender: FDA-Public Use
  Company Number: 2009PL000260

PATIENT
  Age: 66 Year
  Sex: Male
  Weight: 81.6475 kg

DRUGS (3)
  1. MERCAPTOPURINE [Suspect]
     Indication: CROHN'S DISEASE
     Dosage: 50 MG; QD; PO
     Route: 048
     Dates: start: 20090716, end: 20090723
  2. ASACOL [Concomitant]
  3. ENTOCORT EC [Concomitant]

REACTIONS (13)
  - ANAEMIA [None]
  - ARTHRALGIA [None]
  - BACK PAIN [None]
  - BLOOD ELECTROLYTES DECREASED [None]
  - BLOOD URINE PRESENT [None]
  - CHILLS [None]
  - COUGH [None]
  - DYSPNOEA [None]
  - HEADACHE [None]
  - OCULAR HYPERAEMIA [None]
  - PNEUMONITIS CHEMICAL [None]
  - PYREXIA [None]
  - RASH [None]
